FAERS Safety Report 15191733 (Version 2)
Quarter: 2018Q3

REPORT INFORMATION
  Report Type: Spontaneous
  Country: US (occurrence: US)
  Receive Date: 20180724
  Receipt Date: 20180727
  Transmission Date: 20181010
  Serious: Yes (Hospitalization, Other)
  Sender: FDA-Public Use
  Company Number: US-PFIZER INC-2018294883

PATIENT
  Age: 18 Month
  Sex: Male
  Weight: 11 kg

DRUGS (4)
  1. AMINOPHYLLINE. [Suspect]
     Active Substance: AMINOPHYLLINE
     Indication: WHEEZING
     Dosage: 0.25 G, SINGLE
  2. EPINEPHRINE. [Concomitant]
     Active Substance: EPINEPHRINE
     Indication: WHEEZING
     Dosage: 0.1 MG, UNK
  3. EPINEPHRINE. [Concomitant]
     Active Substance: EPINEPHRINE
     Indication: COUGH
     Dosage: UNK (2 MINIMS)
  4. AMINOPHYLLINE. [Suspect]
     Active Substance: AMINOPHYLLINE
     Indication: WHEEZING
     Dosage: UNK [ IMMEDIATELY (STAT) AND EVERY (Q) 2H X 2]
     Route: 042

REACTIONS (7)
  - Brain oedema [Recovering/Resolving]
  - Haematemesis [Recovering/Resolving]
  - Seizure [Recovering/Resolving]
  - Vomiting [Recovering/Resolving]
  - Cyanosis [Recovering/Resolving]
  - Toxicity to various agents [Recovering/Resolving]
  - Dehydration [Recovering/Resolving]
